FAERS Safety Report 20055827 (Version 1)
Quarter: 2021Q4

REPORT INFORMATION
  Report Type: Spontaneous
  Country: US (occurrence: US)
  Receive Date: 20211111
  Receipt Date: 20211111
  Transmission Date: 20220304
  Serious: No
  Sender: FDA-Public Use
  Company Number: CID000000000019498

PATIENT
  Age: 43 Year
  Sex: Male

DRUGS (3)
  1. NUVIGIL [Suspect]
     Active Substance: ARMODAFINIL
     Indication: Somnolence
     Dates: start: 2011
  2. PROVIGIL [Suspect]
     Active Substance: MODAFINIL
     Indication: Somnolence
     Route: 065
     Dates: start: 2011
  3. LUNESTA [Concomitant]
     Active Substance: ESZOPICLONE

REACTIONS (6)
  - Supraventricular extrasystoles [Unknown]
  - Palpitations [Unknown]
  - Sinus tachycardia [Unknown]
  - Supraventricular tachycardia [Unknown]
  - Malaise [Unknown]
  - Illness [Unknown]

NARRATIVE: CASE EVENT DATE: 20200201
